FAERS Safety Report 25018231 (Version 1)
Quarter: 2025Q1

REPORT INFORMATION
  Report Type: Spontaneous
  Country: US (occurrence: US)
  Receive Date: 20250227
  Receipt Date: 20250227
  Transmission Date: 20250409
  Serious: No
  Sender: GLAXOSMITHKLINE
  Company Number: US-GSK-US2025019925

PATIENT
  Sex: Female
  Weight: 71.21 kg

DRUGS (2)
  1. NUCALA [Suspect]
     Active Substance: MEPOLIZUMAB
     Indication: Product used for unknown indication
     Dates: start: 20241206, end: 20241206
  2. SYMBICORT [Concomitant]
     Active Substance: BUDESONIDE\FORMOTEROL FUMARATE DIHYDRATE
     Indication: Asthma
     Dates: start: 20250216

REACTIONS (4)
  - Wheezing [Recovering/Resolving]
  - Respiratory tract congestion [Recovering/Resolving]
  - Cough [Recovering/Resolving]
  - Product dose omission issue [Unknown]
